FAERS Safety Report 7755316-8 (Version None)
Quarter: 2011Q3

REPORT INFORMATION
  Report Type: 
  Country: None (occurrence: None)
  Receive Date: 20110914
  Receipt Date: 20110831
  Transmission Date: 20111222
  Serious: Yes (Death)
  Sender: FDA-Public Use
  Company Number: EU-2011-10162

PATIENT
  Sex: Female

DRUGS (31)
  1. DIPIPERON (PIPAMPERONE HYDROCHLORIDE) [Concomitant]
  2. FUROSEMIDE [Concomitant]
  3. RISPERDAL [Concomitant]
  4. ASPIRIN [Concomitant]
  5. TAZOBACTAM [Concomitant]
  6. SAMSCA [Suspect]
     Indication: HYPONATRAEMIA
     Dosage: 15 MG MILLIGRAM(S), DAILY DOSE, ORAL, 30 MILLIGRAM(S), DAILY DOSE, ORAL. 45 MILLIGRAM(S), DAILY DOSE
     Route: 048
     Dates: start: 20101108, end: 20101110
  7. SAMSCA [Suspect]
     Indication: INAPPROPRIATE ANTIDIURETIC HORMONE SECRETION
     Dosage: 15 MG MILLIGRAM(S), DAILY DOSE, ORAL, 30 MILLIGRAM(S), DAILY DOSE, ORAL. 45 MILLIGRAM(S), DAILY DOSE
     Route: 048
     Dates: start: 20101108, end: 20101110
  8. SAMSCA [Suspect]
     Indication: HYPONATRAEMIA
     Dosage: 15 MG MILLIGRAM(S), DAILY DOSE, ORAL, 30 MILLIGRAM(S), DAILY DOSE, ORAL. 45 MILLIGRAM(S), DAILY DOSE
     Route: 048
     Dates: start: 20101106, end: 20101108
  9. SAMSCA [Suspect]
     Indication: INAPPROPRIATE ANTIDIURETIC HORMONE SECRETION
     Dosage: 15 MG MILLIGRAM(S), DAILY DOSE, ORAL, 30 MILLIGRAM(S), DAILY DOSE, ORAL. 45 MILLIGRAM(S), DAILY DOSE
     Route: 048
     Dates: start: 20101106, end: 20101108
  10. SAMSCA [Suspect]
     Indication: HYPONATRAEMIA
     Dosage: 15 MG MILLIGRAM(S), DAILY DOSE, ORAL, 30 MILLIGRAM(S), DAILY DOSE, ORAL. 45 MILLIGRAM(S), DAILY DOSE
     Route: 048
     Dates: start: 20101105, end: 20101106
  11. SAMSCA [Suspect]
     Indication: INAPPROPRIATE ANTIDIURETIC HORMONE SECRETION
     Dosage: 15 MG MILLIGRAM(S), DAILY DOSE, ORAL, 30 MILLIGRAM(S), DAILY DOSE, ORAL. 45 MILLIGRAM(S), DAILY DOSE
     Route: 048
     Dates: start: 20101105, end: 20101106
  12. SAMSCA [Suspect]
     Indication: HYPONATRAEMIA
     Dosage: 15 MG MILLIGRAM(S), DAILY DOSE, ORAL, 30 MILLIGRAM(S), DAILY DOSE, ORAL. 45 MILLIGRAM(S), DAILY DOSE
     Route: 048
     Dates: start: 20101110, end: 20101113
  13. SAMSCA [Suspect]
     Indication: INAPPROPRIATE ANTIDIURETIC HORMONE SECRETION
     Dosage: 15 MG MILLIGRAM(S), DAILY DOSE, ORAL, 30 MILLIGRAM(S), DAILY DOSE, ORAL. 45 MILLIGRAM(S), DAILY DOSE
     Route: 048
     Dates: start: 20101110, end: 20101113
  14. SAMSCA [Suspect]
     Indication: HYPONATRAEMIA
     Dosage: 15 MG MILLIGRAM(S), DAILY DOSE, ORAL, 30 MILLIGRAM(S), DAILY DOSE, ORAL. 45 MILLIGRAM(S), DAILY DOSE
     Route: 048
     Dates: start: 20101113, end: 20101116
  15. SAMSCA [Suspect]
     Indication: INAPPROPRIATE ANTIDIURETIC HORMONE SECRETION
     Dosage: 15 MG MILLIGRAM(S), DAILY DOSE, ORAL, 30 MILLIGRAM(S), DAILY DOSE, ORAL. 45 MILLIGRAM(S), DAILY DOSE
     Route: 048
     Dates: start: 20101113, end: 20101116
  16. SAMSCA [Suspect]
     Indication: HYPONATRAEMIA
     Dosage: 15 MG MILLIGRAM(S), DAILY DOSE, ORAL, 30 MILLIGRAM(S), DAILY DOSE, ORAL. 45 MILLIGRAM(S), DAILY DOSE
     Route: 048
     Dates: start: 20101116, end: 20110819
  17. SAMSCA [Suspect]
     Indication: INAPPROPRIATE ANTIDIURETIC HORMONE SECRETION
     Dosage: 15 MG MILLIGRAM(S), DAILY DOSE, ORAL, 30 MILLIGRAM(S), DAILY DOSE, ORAL. 45 MILLIGRAM(S), DAILY DOSE
     Route: 048
     Dates: start: 20101116, end: 20110819
  18. SAMSCA [Suspect]
     Indication: HYPONATRAEMIA
     Dosage: 15 MG MILLIGRAM(S), DAILY DOSE, ORAL, 30 MILLIGRAM(S), DAILY DOSE, ORAL. 45 MILLIGRAM(S), DAILY DOSE
     Route: 048
     Dates: start: 20101119, end: 20101127
  19. SAMSCA [Suspect]
     Indication: INAPPROPRIATE ANTIDIURETIC HORMONE SECRETION
     Dosage: 15 MG MILLIGRAM(S), DAILY DOSE, ORAL, 30 MILLIGRAM(S), DAILY DOSE, ORAL. 45 MILLIGRAM(S), DAILY DOSE
     Route: 048
     Dates: start: 20101119, end: 20101127
  20. SAMSCA [Suspect]
     Indication: HYPONATRAEMIA
     Dosage: 15 MG MILLIGRAM(S), DAILY DOSE, ORAL, 30 MILLIGRAM(S), DAILY DOSE, ORAL. 45 MILLIGRAM(S), DAILY DOSE
     Route: 048
     Dates: start: 20101029, end: 20101103
  21. SAMSCA [Suspect]
     Indication: INAPPROPRIATE ANTIDIURETIC HORMONE SECRETION
     Dosage: 15 MG MILLIGRAM(S), DAILY DOSE, ORAL, 30 MILLIGRAM(S), DAILY DOSE, ORAL. 45 MILLIGRAM(S), DAILY DOSE
     Route: 048
     Dates: start: 20101029, end: 20101103
  22. KALINOR (CITRIC ACID, POTASSIUM BICARBONATE, POTASSIUM CITRATE) TABLET [Concomitant]
  23. UNACID (SULTAMICILLIN TOSILATE) [Concomitant]
  24. URSO FALK [Concomitant]
  25. VIANI (FLUTICASONE PROPIONATE, SALMETEROL XINAFOATE) [Concomitant]
  26. ZOCOR [Concomitant]
  27. PREDNISOLON (PREDNISOLON) [Concomitant]
  28. FRAGMIN P (HEPARIN-FRACTION, SODIUM SALT) INJECTION [Concomitant]
  29. DOCITON (PROPRANOLOL  HYDROCHLORIDE) [Concomitant]
  30. LEVOTHYROXINE SODIUM [Concomitant]
  31. SPIRIVA (TIOTROPIUM BROMIDE) CAPSULE [Concomitant]

REACTIONS (1)
  - HYPOTHERMIA [None]
